FAERS Safety Report 7649456-1 (Version None)
Quarter: 2011Q3

REPORT INFORMATION
  Report Type: 
  Country: None (occurrence: None)
  Receive Date: 20110727
  Receipt Date: 20110718
  Transmission Date: 20111222
  Serious: Yes (Other)
  Sender: FDA-Public Use
  Company Number: 2011SP033903

PATIENT
  Sex: Female

DRUGS (1)
  1. MIRALAX [Suspect]
     Dosage: ;    ; PO
     Route: 048

REACTIONS (1)
  - FAECES DISCOLOURED [None]
